FAERS Safety Report 4688391-8 (Version None)
Quarter: 2005Q2

REPORT INFORMATION
  Report Type: 
  Country: None (occurrence: None)
  Receive Date: 20050610
  Receipt Date: 20050610
  Transmission Date: 20051028
  Serious: Yes (Death)
  Sender: FDA-Public Use
  Company Number: None

PATIENT
  Age: 73 Year
  Sex: Female
  Weight: 67.1324 kg

DRUGS (2)
  1. MYLOTARG [Suspect]
     Indication: ACUTE MYELOID LEUKAEMIA
     Dosage: 10.6MG IV DAY 1
     Route: 042
     Dates: start: 20041202
  2. CYTOSAR-U [Suspect]
     Indication: ACUTE MYELOID LEUKAEMIA
     Dosage: 356 MG IV DAY S 1-7
     Route: 042
     Dates: start: 20041202, end: 20041209

REACTIONS (1)
  - DISSEMINATED INTRAVASCULAR COAGULATION [None]
